FAERS Safety Report 16941039 (Version 1)
Quarter: 2019Q4

REPORT INFORMATION
  Report Type: Spontaneous
  Country: US (occurrence: US)
  Receive Date: 20191019
  Receipt Date: 20191019
  Transmission Date: 20200122
  Serious: Yes (Other)
  Sender: FDA-Public Use
  Company Number: None

PATIENT
  Age: 51 Year
  Sex: Female
  Weight: 63 kg

DRUGS (3)
  1. ZICAM COLD REMEDY NASAL GEL [Suspect]
     Active Substance: HOMEOPATHICS\ZINC ACETATE\ZINC GLUCONATE
     Indication: SINUS DISORDER
  2. ZICAM COLD REMEDY NASAL GEL [Suspect]
     Active Substance: HOMEOPATHICS\ZINC ACETATE\ZINC GLUCONATE
     Indication: NASOPHARYNGITIS
  3. ZICAM (HOMEOPATHICS) [Suspect]
     Active Substance: HOMEOPATHICS

REACTIONS (1)
  - Anosmia [None]

NARRATIVE: CASE EVENT DATE: 20030211
